FAERS Safety Report 20749283 (Version 1)
Quarter: 2022Q2

REPORT INFORMATION
  Report Type: Spontaneous
  Country: US (occurrence: US)
  Receive Date: 20220426
  Receipt Date: 20220426
  Transmission Date: 20220720
  Serious: Yes (Other)
  Sender: FDA-Public Use
  Company Number: US-BRISTOL-MYERS SQUIBB COMPANY-2022-021868

PATIENT
  Age: 71 Year
  Sex: Male
  Weight: 66 kg

DRUGS (1)
  1. ABRAXANE [Suspect]
     Active Substance: PACLITAXEL
     Indication: Product used for unknown indication
     Dosage: DOSE 155 MG FREQUENCY : EVERY 2 WEEK
     Route: 042
     Dates: end: 20211213

REACTIONS (2)
  - Malignant neoplasm progression [Unknown]
  - Off label use [Unknown]
